FAERS Safety Report 9844906 (Version 1)
Quarter: 2014Q1

REPORT INFORMATION
  Report Type: Spontaneous
  Country: US (occurrence: US)
  Receive Date: 20140127
  Receipt Date: 20140127
  Transmission Date: 20141002
  Serious: No
  Sender: FDA-Public Use
  Company Number: US-MYLANLABS-2013S1011726

PATIENT
  Age: 92 Year
  Sex: Female
  Weight: 71.67 kg

DRUGS (1)
  1. CETIRIZINE HYDROCHLORIDE TABLETS [Suspect]
     Indication: MULTIPLE ALLERGIES
     Route: 048
     Dates: start: 201304

REACTIONS (1)
  - Vision blurred [Not Recovered/Not Resolved]
